FAERS Safety Report 10871524 (Version 1)
Quarter: 2015Q1

REPORT INFORMATION
  Report Type: Spontaneous
  Country: US (occurrence: US)
  Receive Date: 20150226
  Receipt Date: 20150226
  Transmission Date: 20150721
  Serious: Yes (Other)
  Sender: FDA-Public Use
  Company Number: US-GLAXOSMITHKLINE-US2015GSK025828

PATIENT
  Sex: Female

DRUGS (9)
  1. BREO ELLIPTA [Suspect]
     Active Substance: FLUTICASONE FUROATE\VILANTEROL TRIFENATATE
     Indication: PRODUCT USED FOR UNKNOWN INDICATION
     Dosage: 1 PUFF(S), QD
     Route: 055
     Dates: start: 2014
  2. LEVOTHYROXINE [Concomitant]
     Active Substance: LEVOTHYROXINE
  3. OXYCONTIN [Concomitant]
     Active Substance: OXYCODONE HYDROCHLORIDE
  4. TIZANIDINE (TIZANIDINE) [Concomitant]
     Active Substance: TIZANIDINE
  5. OXYCODONE [Concomitant]
     Active Substance: OXYCODONE
  6. DULOXETINE [Concomitant]
     Active Substance: DULOXETINE
  7. BISOPROLOL + HYDROCHLOROTHIAZIDE [Concomitant]
  8. LOSARTAN [Concomitant]
     Active Substance: LOSARTAN
  9. GABAPENTIN. [Concomitant]
     Active Substance: GABAPENTIN

REACTIONS (6)
  - Visual acuity reduced [Not Recovered/Not Resolved]
  - Visual impairment [Not Recovered/Not Resolved]
  - Cataract operation [Recovered/Resolved]
  - Eye injury [Unknown]
  - Eye operation [Recovered/Resolved]
  - Extraocular muscle paresis [Unknown]

NARRATIVE: CASE EVENT DATE: 2014
